FAERS Safety Report 8505790-4 (Version None)
Quarter: 2012Q3

REPORT INFORMATION
  Report Type: 
  Country: None (occurrence: None)
  Receive Date: 20120712
  Receipt Date: 20120706
  Transmission Date: 20120928
  Serious: Yes (Hospitalization)
  Sender: FDA-Public Use
  Company Number: DE-UCBSA-058008

PATIENT
  Sex: Female

DRUGS (10)
  1. PREDNISOLONE [Concomitant]
     Dosage: 10 MG
  2. BRONCHORETARD [Concomitant]
     Dosage: 200-0-350 MG
  3. LEVOTHYROXINE SODIUM [Concomitant]
     Dosage: 50 MICRO G
  4. VIMPAT [Suspect]
     Indication: EPILEPSY
     Route: 048
     Dates: end: 20120412
  5. OXCARBAZEPINE [Concomitant]
     Dosage: DAILY DOSE: 900
     Route: 048
  6. DILTAHEXAL [Concomitant]
     Dosage: 90 MG (1-0-1/2)  PATIENT IS RECEIVING CONTROLLED RELEASE TABLETS
  7. PROCORALAN [Concomitant]
  8. SEROQUEL [Concomitant]
     Dosage: FOR THE NIGHT
  9. ASTHMA SPRAY [Concomitant]
  10. CLOPIDOGREL [Concomitant]
     Dosage: 75

REACTIONS (2)
  - UNEVALUABLE EVENT [None]
  - PYREXIA [None]
